FAERS Safety Report 12789505 (Version 2)
Quarter: 2017Q3

REPORT INFORMATION
  Report Type: Spontaneous
  Country: US (occurrence: US)
  Receive Date: 20160928
  Receipt Date: 20170803
  Transmission Date: 20171127
  Serious: No
  Sender: FDA-Public Use
  Company Number: GXBR2016US002953

PATIENT
  Age: 30 Year
  Sex: Female
  Weight: 57.14 kg

DRUGS (2)
  1. RANITIDINE HCL TABLETS (I) [Suspect]
     Active Substance: RANITIDINE HYDROCHLORIDE
     Indication: GASTROOESOPHAGEAL REFLUX DISEASE
     Dosage: 150 MG, QD
     Route: 048
     Dates: start: 20160914, end: 20160918
  2. ZONISAMIDE. [Concomitant]
     Active Substance: ZONISAMIDE
     Indication: SEIZURE
     Dosage: UNK DF, UNK

REACTIONS (3)
  - Gastrooesophageal reflux disease [Recovering/Resolving]
  - Abdominal pain [Recovered/Resolved]
  - Diarrhoea [Recovered/Resolved]

NARRATIVE: CASE EVENT DATE: 201609
